FAERS Safety Report 9030294 (Version 1)
Quarter: 2013Q1

REPORT INFORMATION
  Report Type: Spontaneous
  Country: GB (occurrence: GB)
  Receive Date: 20130122
  Receipt Date: 20130122
  Transmission Date: 20140127
  Serious: Yes (Other)
  Sender: FDA-Public Use
  Company Number: PHHY2013GB004912

PATIENT
  Age: 85 Year
  Sex: Male
  Weight: 57 kg

DRUGS (7)
  1. TRAMADOL [Suspect]
     Indication: ANALGESIC THERAPY
     Dosage: 50 MG,
     Route: 048
     Dates: start: 20111108, end: 20130102
  2. OMEPRAZOLE [Concomitant]
     Indication: DYSPEPSIA
     Dosage: 1 DF, UNK
     Route: 048
  3. BUTRANS [Concomitant]
     Indication: ANALGESIC THERAPY
     Dosage: 1 DF, QD
     Dates: start: 20121004
  4. PENTAZOCINE [Concomitant]
     Indication: ANALGESIC THERAPY
     Dosage: 50 MG, UNK
     Route: 048
     Dates: start: 20121210
  5. ASPIRIN [Concomitant]
     Dosage: 75 MG, QD
     Route: 048
     Dates: start: 20120423
  6. RAMIPRIL [Concomitant]
     Indication: HYPERTENSION
     Dosage: 1.25 MG, BID
     Route: 048
     Dates: start: 20100817
  7. FINASTERIDE [Concomitant]
     Indication: BENIGN PROSTATIC HYPERPLASIA
     Dosage: 5 MG, UNK
     Route: 048
     Dates: start: 20100817

REACTIONS (4)
  - Lymphocyte count decreased [Not Recovered/Not Resolved]
  - Red blood cell analysis abnormal [Unknown]
  - Red blood cell count decreased [Unknown]
  - Blood urea increased [Unknown]
